FAERS Safety Report 18286192 (Version 1)
Quarter: 2020Q3

REPORT INFORMATION
  Report Type: Spontaneous
  Country: US (occurrence: US)
  Receive Date: 20200919
  Receipt Date: 20200919
  Transmission Date: 20201103
  Serious: Yes (Death, Life-Threatening, Hospitalization, Other)
  Sender: FDA-Public Use
  Company Number: US-TEVA-2020-US-1830216

PATIENT
  Sex: Male

DRUGS (1)
  1. AMIODARONE TEVA [Suspect]
     Active Substance: AMIODARONE
     Indication: ATRIAL FIBRILLATION
     Route: 065
     Dates: start: 201605

REACTIONS (12)
  - Dyspnoea [Unknown]
  - Wheezing [Unknown]
  - Cough [Unknown]
  - Asthenia [Unknown]
  - Product use in unapproved indication [Unknown]
  - Fatigue [Unknown]
  - Weight decreased [Unknown]
  - Gait inability [Unknown]
  - Respiratory failure [Fatal]
  - Pulmonary fibrosis [Fatal]
  - General physical health deterioration [Unknown]
  - Pneumonia [Unknown]

NARRATIVE: CASE EVENT DATE: 201605
